FAERS Safety Report 7580799-6 (Version None)
Quarter: 2011Q2

REPORT INFORMATION
  Report Type: 
  Country: None (occurrence: None)
  Receive Date: 20110622
  Receipt Date: 20110614
  Transmission Date: 20111010
  Serious: Yes (Hospitalization)
  Sender: FDA-Public Use
  Company Number: 2011-1949

PATIENT
  Age: 65 Year
  Sex: Male

DRUGS (1)
  1. LANREOTIDE AUTOGEL (LANREOTIDE) (LANREOTIDE ACETATE) [Suspect]
     Indication: NEUROENDOCRINE TUMOUR
     Dosage: 90 MG (90 MG, 1 IN 28 D)
     Dates: start: 20100201, end: 20110101

REACTIONS (4)
  - INAPPROPRIATE SCHEDULE OF DRUG ADMINISTRATION [None]
  - LYMPHADENOPATHY [None]
  - GROIN PAIN [None]
  - BENIGN LYMPH NODE NEOPLASM [None]
